FAERS Safety Report 7016093-1 (Version None)
Quarter: 2010Q3

REPORT INFORMATION
  Report Type: 
  Country: None (occurrence: None)
  Receive Date: 20100927
  Receipt Date: 20100702
  Transmission Date: 20110219
  Serious: Yes (Hospitalization)
  Sender: FDA-Public Use
  Company Number: US-ASTRAZENECA-2008UW15879

PATIENT
  Age: 66 Year
  Sex: Female
  Weight: 57.6 kg

DRUGS (3)
  1. ARIMIDEX [Suspect]
     Indication: BREAST CANCER FEMALE
     Route: 048
     Dates: start: 20071101
  2. FOSAMAX [Concomitant]
     Route: 065
  3. BLOOD PRESSURE MEDICINE [Concomitant]
     Route: 065

REACTIONS (2)
  - CEREBROVASCULAR ACCIDENT [None]
  - RHEUMATOID ARTHRITIS [None]
